FAERS Safety Report 6018010-X (Version None)
Quarter: 2008Q4

REPORT INFORMATION
  Report Type: 
  Country: None (occurrence: None)
  Receive Date: 20081223
  Receipt Date: 20081210
  Transmission Date: 20090506
  Serious: Yes (Death)
  Sender: FDA-Public Use
  Company Number: B0549967A

PATIENT
  Age: 70 Year
  Sex: Male

DRUGS (6)
  1. AMOXICILLIN AND CLAVULANATE POTASSIUM [Suspect]
     Dosage: 3G PER DAY
     Route: 065
     Dates: start: 20080725, end: 20080811
  2. LOVENOX [Suspect]
     Dosage: 6000IU TWICE PER DAY
     Route: 058
     Dates: start: 20080807, end: 20080820
  3. CALCIPARINE [Suspect]
     Dosage: .6ML TWICE PER DAY
     Dates: start: 20080726, end: 20080807
  4. HEMIGOXINE NATIVELLE [Concomitant]
     Dosage: 1TAB PER DAY
     Route: 048
     Dates: start: 20080804, end: 20080822
  5. LANTUS [Concomitant]
     Route: 058
     Dates: start: 20080615, end: 20080822
  6. DIGOXIN [Concomitant]
     Route: 065
     Dates: start: 20080726, end: 20080804

REACTIONS (3)
  - DYSPNOEA [None]
  - RESPIRATORY FAILURE [None]
  - THROMBOCYTOPENIA [None]
